FAERS Safety Report 23057642 (Version 1)
Quarter: 2023Q4

REPORT INFORMATION
  Report Type: Report from Study
  Country: US (occurrence: US)
  Receive Date: 20231012
  Receipt Date: 20231012
  Transmission Date: 20240110
  Serious: Yes (Other)
  Sender: FDA-Public Use
  Company Number: US-ABBVIE-5442529

PATIENT
  Sex: Female

DRUGS (2)
  1. HUMIRA [Suspect]
     Active Substance: ADALIMUMAB
     Indication: Rheumatoid arthritis
     Dosage: FORM STRENGTH- 40 MILLIGRAM?CITRATE FREE
     Route: 058
     Dates: start: 20211007
  2. Covid 19 vaccine [Concomitant]
     Indication: COVID-19 immunisation
     Dosage: TIME INTERVAL: TOTAL: ONE IN ONCE
     Route: 030
     Dates: start: 202309, end: 202309

REACTIONS (2)
  - Retinal detachment [Unknown]
  - Vitritis [Unknown]
